FAERS Safety Report 7896426-4 (Version None)
Quarter: 2011Q4

REPORT INFORMATION
  Report Type: 
  Country: None (occurrence: None)
  Receive Date: 20111106
  Receipt Date: 20110909
  Transmission Date: 20120403
  Serious: No
  Sender: FDA-Public Use
  Company Number: US-AMGEN-USASP2011046257

PATIENT
  Age: 27 Year
  Sex: Female
  Weight: 58.1 kg

DRUGS (5)
  1. CYMBALTA [Concomitant]
     Dosage: UNK
  2. ENBREL [Suspect]
     Indication: PRODUCT USED FOR UNKNOWN INDICATION
     Dosage: 50 MG, QWK
     Dates: start: 20100301
  3. CLONAZEPAM [Concomitant]
     Dosage: UNK
  4. CLOBETASOL [Concomitant]
     Dosage: UNK
  5. CHANTIX [Concomitant]
     Dosage: UNK

REACTIONS (2)
  - DRUG INEFFECTIVE [None]
  - INCREASED TENDENCY TO BRUISE [None]
